FAERS Safety Report 9624309 (Version 1)
Quarter: 2013Q4

REPORT INFORMATION
  Report Type: Spontaneous
  Country: US (occurrence: US)
  Receive Date: 20131015
  Receipt Date: 20131015
  Transmission Date: 20140711
  Serious: Yes (Other)
  Sender: FDA-Public Use
  Company Number: US-PFIZER INC-2013292534

PATIENT
  Age: 55 Year
  Sex: Male

DRUGS (1)
  1. DILANTIN-125 [Suspect]
     Indication: TARDIVE DYSKINESIA
     Dosage: UNK

REACTIONS (3)
  - Toxicity to various agents [Unknown]
  - Anticonvulsant drug level below therapeutic [Unknown]
  - Tardive dyskinesia [Unknown]
